FAERS Safety Report 23906362 (Version 2)
Quarter: 2024Q3

REPORT INFORMATION
  Report Type: Spontaneous
  Country: US (occurrence: None)
  Receive Date: 20240528
  Receipt Date: 20240704
  Transmission Date: 20241017
  Serious: No
  Sender: ASTRAZENECA
  Company Number: 2024A119991

PATIENT
  Age: 93 Year
  Sex: Female

DRUGS (1)
  1. AIRSUPRA [Suspect]
     Active Substance: ALBUTEROL SULFATE\BUDESONIDE
     Route: 055
     Dates: start: 20240520

REACTIONS (3)
  - Hypoacusis [Unknown]
  - Device defective [Unknown]
  - Device use issue [Unknown]

NARRATIVE: CASE EVENT DATE: 20240520
